FAERS Safety Report 4776695-X (Version None)
Quarter: 2005Q3

REPORT INFORMATION
  Report Type: 
  Country: None (occurrence: None)
  Receive Date: 20050923
  Receipt Date: 20050912
  Transmission Date: 20060218
  Serious: Yes (Death)
  Sender: FDA-Public Use
  Company Number: US-JNJFOC-20031205312

PATIENT
  Sex: Female

DRUGS (7)
  1. INFLIXIMAB [Suspect]
     Indication: RHEUMATOID ARTHRITIS
     Route: 042
     Dates: start: 20000104, end: 20030317
  2. DIPYRIDAMOLE [Concomitant]
  3. SYNTHROID [Concomitant]
  4. PREDNISONE [Concomitant]
  5. ASPIRIN [Concomitant]
  6. TYLENOL [Concomitant]
  7. IBUPROFEN [Concomitant]

REACTIONS (1)
  - ACUTE MYOCARDIAL INFARCTION [None]
